FAERS Safety Report 5252332-5 (Version None)
Quarter: 2007Q1

REPORT INFORMATION
  Report Type: 
  Country: None (occurrence: None)
  Receive Date: 20070301
  Receipt Date: 20060511
  Transmission Date: 20070707
  Serious: Yes (Other)
  Sender: FDA-Public Use
  Company Number: US-BRISTOL-MYERS SQUIBB COMPANY-13380217

PATIENT
  Sex: Male

DRUGS (2)
  1. CARBOPLATIN [Suspect]
     Indication: SQUAMOUS CELL CARCINOMA OF SKIN
     Route: 042
  2. TAXOL [Suspect]

REACTIONS (1)
  - RENAL IMPAIRMENT [None]
